FAERS Safety Report 22260772 (Version 2)
Quarter: 2023Q2

REPORT INFORMATION
  Report Type: Spontaneous
  Country: CA (occurrence: CA)
  Receive Date: 20230427
  Receipt Date: 20230522
  Transmission Date: 20230721
  Serious: Yes (Other)
  Sender: FDA-Public Use
  Company Number: CA-PFIZER INC-202300170309

PATIENT
  Age: 25 Year
  Sex: Male

DRUGS (10)
  1. RITUXIMAB [Suspect]
     Active Substance: RITUXIMAB
     Indication: Systemic lupus erythematosus
     Dosage: 1 DF, DOSAGE INFO: UNKNOWNSTOP DATE: UNKNOWN
     Route: 042
     Dates: start: 2017, end: 202009
  2. RITUXIMAB [Suspect]
     Active Substance: RITUXIMAB
     Dosage: 1 DF,DOSAGE INFO: UNKNOWNSTOP DATE: UNKNOWN
     Route: 042
  3. RITUXIMAB [Suspect]
     Active Substance: RITUXIMAB
     Dosage: 1 DF, DOSAGE INFO: UNKNOWNSTOP DATE: UNKNOWN
     Route: 042
  4. RITUXIMAB [Suspect]
     Active Substance: RITUXIMAB
     Dosage: 1 DF, DOSAGE INFO: UNKNOWNSTOP DATE: UNKNOWN
     Route: 042
  5. RITUXIMAB [Suspect]
     Active Substance: RITUXIMAB
     Dosage: 1 DFDOSAGE INFO: UNKNOWNSTOP DATE: UNKNOWN
     Route: 042
     Dates: start: 202009, end: 202009
  6. CALCIUM [Concomitant]
     Active Substance: CALCIUM
     Dosage: UNK
  7. HYDROXYCHLOROQUINE [Concomitant]
     Active Substance: HYDROXYCHLOROQUINE
     Indication: Lupus nephritis
     Dosage: 400 MG, DAILY
     Dates: start: 2015
  8. MYCOPHENOLATE MOFETIL [Concomitant]
     Active Substance: MYCOPHENOLATE MOFETIL
     Indication: Lupus nephritis
     Dosage: 2 G, DAILY
     Dates: start: 2015
  9. PREDNISONE [Concomitant]
     Active Substance: PREDNISONE
     Indication: Lupus nephritis
     Dosage: 10 MG TWICE DAILY
     Dates: start: 2015
  10. CHOLECALCIFEROL [Concomitant]
     Active Substance: CHOLECALCIFEROL
     Dosage: UNK

REACTIONS (4)
  - Osteonecrosis [Unknown]
  - Skin lesion [Unknown]
  - Rash papulosquamous [Recovering/Resolving]
  - Off label use [Unknown]

NARRATIVE: CASE EVENT DATE: 20170101
